FAERS Safety Report 9999135 (Version 2)
Quarter: 2014Q1

REPORT INFORMATION
  Report Type: Spontaneous
  Country: JP (occurrence: None)
  Receive Date: 20140310
  Receipt Date: 20140327
  Transmission Date: 20141002
  Serious: Yes (Other)
  Sender: FDA-Public Use
  Company Number: 2217652

PATIENT
  Age: 91 Year
  Sex: Female
  Weight: 30 kg

DRUGS (5)
  1. DEXMEDETOMIDINE HYDROCHLORIDE [Suspect]
     Indication: SEDATION
     Dosage: 6 MCG/KG/HR, INTRAVENOUS (NOT OTHERWISE SPECIFIED)
     Route: 042
     Dates: start: 20140217, end: 20140217
  2. MIDAZOLAM [Suspect]
     Indication: SEDATION
     Route: 042
     Dates: start: 20140217
  3. LIDOCAINE [Concomitant]
  4. FLUMAZENIL [Concomitant]
  5. OXYGEN [Concomitant]

REACTIONS (2)
  - Glossoptosis [None]
  - Upper airway obstruction [None]
